FAERS Safety Report 5529729-9 (Version None)
Quarter: 2007Q4

REPORT INFORMATION
  Report Type: 
  Country: None (occurrence: None)
  Receive Date: 20071129
  Receipt Date: 20061214
  Transmission Date: 20080405
  Serious: No
  Sender: FDA-Public Use
  Company Number: US-ABBOTT-06P-163-0353411-00

PATIENT
  Sex: Female
  Weight: 86.26 kg

DRUGS (4)
  1. MERIDIA [Suspect]
     Indication: WEIGHT CONTROL
     Route: 048
     Dates: start: 20061208, end: 20061212
  2. DIOVAN HCT [Concomitant]
     Indication: BLOOD PRESSURE
     Route: 048
  3. ZOCOR [Concomitant]
     Indication: BLOOD CHOLESTEROL INCREASED
     Route: 048
  4. IMITREX [Concomitant]
     Indication: MIGRAINE
     Route: 048

REACTIONS (1)
  - DIPLOPIA [None]
